FAERS Safety Report 7097922-2 (Version None)
Quarter: 2010Q4

REPORT INFORMATION
  Report Type: 
  Country: None (occurrence: None)
  Receive Date: 20101112
  Receipt Date: 20101029
  Transmission Date: 20110411
  Serious: Yes (Other)
  Sender: FDA-Public Use
  Company Number: US-JNJFOC-20100806515

PATIENT
  Sex: Male

DRUGS (3)
  1. LEVAQUIN [Suspect]
     Indication: CHRONIC OBSTRUCTIVE PULMONARY DISEASE
     Route: 048
  2. LEVAQUIN [Suspect]
     Indication: BRONCHITIS
     Route: 048
  3. PREDNISONE [Suspect]
     Indication: ILL-DEFINED DISORDER
     Route: 065

REACTIONS (10)
  - ASTHENIA [None]
  - DEPRESSION [None]
  - FOOT DEFORMITY [None]
  - HYPOTONIA [None]
  - IMMOBILE [None]
  - IMPAIRED HEALING [None]
  - LUNG DISORDER [None]
  - TENDON RUPTURE [None]
  - WEIGHT DECREASED [None]
  - WOUND [None]
